FAERS Safety Report 25463593 (Version 2)
Quarter: 2025Q2

REPORT INFORMATION
  Report Type: Spontaneous
  Country: US (occurrence: US)
  Receive Date: 20250620
  Receipt Date: 20250625
  Transmission Date: 20250717
  Serious: Yes (Other)
  Sender: REGENERON
  Company Number: US-REGENERON PHARMACEUTICALS, INC.-2025-067185

PATIENT
  Sex: Female

DRUGS (2)
  1. EYLEA HD [Suspect]
     Active Substance: AFLIBERCEPT
     Indication: Eye disorder
     Dosage: 8 MG EVERY 4 WEEKS; FORMULATION: HD VIAL
     Dates: start: 2024
  2. EYLEA HD [Suspect]
     Active Substance: AFLIBERCEPT
     Dosage: 8 MG EVERY 6 WEEKS; FORMULATION: HD VIAL

REACTIONS (3)
  - Retinal vein occlusion [Not Recovered/Not Resolved]
  - Fibromyalgia [Unknown]
  - Rotator cuff syndrome [Unknown]

NARRATIVE: CASE EVENT DATE: 20250101
